FAERS Safety Report 15761585 (Version 2)
Quarter: 2019Q1

REPORT INFORMATION
  Report Type: Spontaneous
  Country: JP (occurrence: JP)
  Receive Date: 20181226
  Receipt Date: 20190118
  Transmission Date: 20190417
  Serious: Yes (Hospitalization)
  Sender: FDA-Public Use
  Company Number: JP-JNJFOC-20181226803

PATIENT
  Age: 70 Year
  Sex: Female

DRUGS (4)
  1. REMINYL [Suspect]
     Active Substance: GALANTAMINE
     Indication: PRODUCT USED FOR UNKNOWN INDICATION
     Route: 048
  2. REMINYL [Suspect]
     Active Substance: GALANTAMINE
     Indication: PRODUCT USED FOR UNKNOWN INDICATION
     Route: 048
     Dates: start: 201812
  3. REMINYL [Suspect]
     Active Substance: GALANTAMINE
     Indication: PRODUCT USED FOR UNKNOWN INDICATION
     Route: 048
  4. REMINYL [Suspect]
     Active Substance: GALANTAMINE
     Indication: PRODUCT USED FOR UNKNOWN INDICATION
     Route: 048
     Dates: start: 20181215, end: 201812

REACTIONS (1)
  - Hospitalisation [Unknown]

NARRATIVE: CASE EVENT DATE: 201812
